FAERS Safety Report 18550566 (Version 1)
Quarter: 2020Q4

REPORT INFORMATION
  Report Type: Spontaneous
  Country: US (occurrence: US)
  Receive Date: 20201126
  Receipt Date: 20201126
  Transmission Date: 20210114
  Serious: Yes (Other)
  Sender: FDA-Public Use
  Company Number: US-IPSEN BIOPHARMACEUTICALS, INC.-2020-22931

PATIENT
  Age: 29 Year
  Sex: Female

DRUGS (2)
  1. DYSPORT [Suspect]
     Active Substance: ABOBOTULINUMTOXINA
     Indication: OFF LABEL USE
  2. DYSPORT [Suspect]
     Active Substance: ABOBOTULINUMTOXINA
     Indication: LIP COSMETIC PROCEDURE
     Dosage: 10 UNITS
     Route: 065
     Dates: start: 20201111, end: 20201111

REACTIONS (2)
  - Off label use [Unknown]
  - Facial paralysis [Unknown]

NARRATIVE: CASE EVENT DATE: 202011
